FAERS Safety Report 8025626-8 (Version None)
Quarter: 2012Q1

REPORT INFORMATION
  Report Type: 
  Country: None (occurrence: None)
  Receive Date: 20120105
  Receipt Date: 20111230
  Transmission Date: 20120608
  Serious: No
  Sender: FDA-Public Use
  Company Number: US-BAYER-2012-001129

PATIENT
  Age: 74 Year
  Sex: Female
  Weight: 100 kg

DRUGS (7)
  1. ALEVE (CAPLET) [Suspect]
     Indication: ARTHRITIS
     Dosage: 2 TABS AS NEEDED
     Route: 048
  2. FISH OIL [Concomitant]
  3. BLOOD PRESSURE MEDICATION [Concomitant]
  4. WATER PILL [Concomitant]
  5. NAPROSYN [Concomitant]
  6. SLEEPING PILL [Concomitant]
  7. MULTI-VITAMIN [Concomitant]

REACTIONS (1)
  - NO ADVERSE EVENT [None]
